FAERS Safety Report 9120317 (Version 2)
Quarter: 2013Q1

REPORT INFORMATION
  Report Type: Spontaneous
  Country: US (occurrence: US)
  Receive Date: 20130226
  Receipt Date: 20130304
  Transmission Date: 20140127
  Serious: Yes (Other)
  Sender: FDA-Public Use
  Company Number: US-PFIZER INC-2013066718

PATIENT
  Age: 30 Year
  Sex: Female
  Weight: 79.82 kg

DRUGS (5)
  1. PRISTIQ [Suspect]
     Indication: DEPRESSION
     Dosage: 100 MG, 1X/DAY
     Route: 048
  2. PRISTIQ [Suspect]
     Indication: ANXIETY
  3. PRISTIQ [Suspect]
     Indication: HEADACHE
  4. PRISTIQ [Suspect]
     Indication: NECK PAIN
  5. LYRICA [Suspect]
     Indication: FIBROMYALGIA
     Dosage: 75 MG, 1X/DAY
     Route: 048

REACTIONS (4)
  - Cerebral cyst [Unknown]
  - Dizziness [Not Recovered/Not Resolved]
  - Off label use [Unknown]
  - Pain [Unknown]
